FAERS Safety Report 4324807-4 (Version None)
Quarter: 2004Q1

REPORT INFORMATION
  Report Type: 
  Country: None (occurrence: None)
  Receive Date: 20040326
  Receipt Date: 20040316
  Transmission Date: 20041129
  Serious: Yes (Hospitalization)
  Sender: FDA-Public Use
  Company Number: FR-GLAXOSMITHKLINE-B0327028A

PATIENT
  Age: 48 Year
  Sex: Male
  Weight: 110 kg

DRUGS (2)
  1. COMBIVIR [Suspect]
     Dosage: 1UNIT TWICE PER DAY
     Route: 048
     Dates: start: 20031231, end: 20040130
  2. VIRACEPT [Suspect]
     Dosage: 5UNIT TWICE PER DAY
     Route: 048
     Dates: start: 20031221, end: 20040130

REACTIONS (1)
  - NEPHROLITHIASIS [None]
